FAERS Safety Report 21053001 (Version 1)
Quarter: 2022Q3

REPORT INFORMATION
  Report Type: Other
  Country: MX (occurrence: None)
  Receive Date: 20220707
  Receipt Date: 20220707
  Transmission Date: 20221027
  Serious: Yes (Other)
  Sender: FDA-Public Use
  Company Number: MX-ROCHE-3130023

PATIENT
  Sex: Male

DRUGS (1)
  1. OCREVUS [Suspect]
     Active Substance: OCRELIZUMAB
     Indication: Multiple sclerosis
     Dosage: VIAL 300MG/10ML (30MG/ML)
     Route: 042
     Dates: start: 20210420

REACTIONS (6)
  - Platelet count increased [Unknown]
  - Albumin globulin ratio increased [Unknown]
  - Blood bilirubin increased [Unknown]
  - Multiple sclerosis [Unknown]
  - Hepatitis B surface antigen positive [Unknown]
  - Hepatitis B surface antibody positive [Unknown]
